FAERS Safety Report 20748696 (Version 2)
Quarter: 2022Q2

REPORT INFORMATION
  Report Type: Spontaneous
  Country: US (occurrence: US)
  Receive Date: 20220426
  Receipt Date: 20220505
  Transmission Date: 20220720
  Serious: Yes (Hospitalization, Other)
  Sender: FDA-Public Use
  Company Number: US-AMGEN-USASP2022068391

PATIENT
  Sex: Female

DRUGS (2)
  1. BLINCYTO [Suspect]
     Active Substance: BLINATUMOMAB
     Indication: Product used for unknown indication
     Dosage: 15 MICROGRAM PER METER SQUARE PER DAY
     Route: 065
     Dates: start: 20220307
  2. BLINCYTO [Suspect]
     Active Substance: BLINATUMOMAB
     Dosage: 5 MICROGRAM PER METER SQUARE PER DAY
     Route: 065
     Dates: start: 20220307

REACTIONS (2)
  - Pain [Unknown]
  - Encephalopathy [Unknown]

NARRATIVE: CASE EVENT DATE: 20220307
